FAERS Safety Report 8010049-8 (Version None)
Quarter: 2011Q4

REPORT INFORMATION
  Report Type: 
  Country: None (occurrence: None)
  Receive Date: 20111221
  Receipt Date: 20111213
  Transmission Date: 20120403
  Serious: Yes (Hospitalization)
  Sender: FDA-Public Use
  Company Number: 1135220

PATIENT
  Age: 71 Year
  Sex: Male

DRUGS (5)
  1. SOLU-CORTEF [Concomitant]
  2. CARBOPLATIN [Suspect]
     Indication: MESOTHELIOMA
     Dosage: 430 MG MILLIGRAM(S), INTRAVENOUS
     Route: 042
     Dates: start: 20111212, end: 20111212
  3. (DEXAMETHASONE) [Concomitant]
  4. ONDANSETRON [Concomitant]
  5. ALIMTA [Concomitant]

REACTIONS (3)
  - LOSS OF CONSCIOUSNESS [None]
  - DYSPNOEA [None]
  - CARDIAC ARREST [None]
